FAERS Safety Report 5560615-4 (Version None)
Quarter: 2007Q4

REPORT INFORMATION
  Report Type: 
  Country: None (occurrence: None)
  Receive Date: 20071215
  Receipt Date: 20071116
  Transmission Date: 20080405
  Serious: Yes (Other)
  Sender: FDA-Public Use
  Company Number: US-ABBOTT-07P-163-0425355-00

PATIENT
  Sex: Female
  Weight: 63.56 kg

DRUGS (14)
  1. HUMIRA [Suspect]
     Indication: GASTROINTESTINAL HAEMORRHAGE
     Dosage: 160MG STARTER DOSE, THEN 80MG X1 AND THEN 40MG EVERY
     Route: 058
     Dates: start: 20071101
  2. HUMIRA [Suspect]
  3. HUMIRA [Suspect]
     Route: 058
  4. AZATHIOPRINE [Suspect]
     Indication: GASTROINTESTINAL HAEMORRHAGE
     Route: 048
     Dates: start: 20071023
  5. AZATHIOPRINE [Suspect]
     Route: 048
     Dates: start: 20070912, end: 20071023
  6. CYANOCOBALAMIN [Concomitant]
     Indication: DRUG USE FOR UNKNOWN INDICATION
     Route: 050
  7. CYANOCOBALAMIN [Concomitant]
     Route: 048
  8. ERGOCALCIFEROL [Concomitant]
     Indication: DRUG USE FOR UNKNOWN INDICATION
  9. CENTRUM SILVER [Concomitant]
     Indication: DRUG USE FOR UNKNOWN INDICATION
     Route: 048
  10. FISH OIL [Concomitant]
     Indication: DRUG USE FOR UNKNOWN INDICATION
     Route: 048
  11. COD LIVER OIL [Concomitant]
     Indication: DRUG USE FOR UNKNOWN INDICATION
     Route: 048
  12. CALCIUM WITH VITAMIN D [Concomitant]
     Indication: DRUG USE FOR UNKNOWN INDICATION
     Dosage: 1000MG/400MG (TOTAL DAILY DOSE) 1000MG/400MG (UNIT DOSE)
     Route: 048
  13. ACYCLOVIR [Concomitant]
     Indication: ANTIVIRAL PROPHYLAXIS
     Route: 048
  14. PREDNISONE [Concomitant]
     Indication: DRUG USE FOR UNKNOWN INDICATION
     Route: 048
     Dates: start: 20070802, end: 20071111

REACTIONS (4)
  - FEELING ABNORMAL [None]
  - INJECTION SITE PAIN [None]
  - SKIN CANCER [None]
  - SOMNOLENCE [None]
